FAERS Safety Report 9574774 (Version 4)
Quarter: 2014Q1

REPORT INFORMATION
  Report Type: Spontaneous
  Country: US (occurrence: US)
  Receive Date: 20131001
  Receipt Date: 20140320
  Transmission Date: 20141002
  Serious: Yes (Other)
  Sender: FDA-Public Use
  Company Number: US-JNJFOC-20130912187

PATIENT
  Age: 33 Year
  Sex: Male
  Weight: 88.45 kg

DRUGS (4)
  1. TRAMADOL IR [Suspect]
     Indication: ABDOMINAL PAIN UPPER
     Dosage: STRENGTH: 50 MG, DAILY
     Route: 048
     Dates: start: 20130829, end: 20130915
  2. TRAMADOL IR [Suspect]
     Indication: BACK PAIN
     Dosage: STRENGTH: 50 MG, DAILY
     Route: 048
     Dates: start: 20130829, end: 20130915
  3. FLOMAX [Concomitant]
     Indication: CALCULUS URINARY
     Route: 048
     Dates: start: 2013, end: 20130915
  4. BACLOFEN [Concomitant]
     Indication: MUSCLE RELAXANT THERAPY
     Route: 048
     Dates: start: 2013, end: 20130915

REACTIONS (2)
  - Calculus urinary [Recovered/Resolved]
  - Drug screen positive [Recovered/Resolved]
